FAERS Safety Report 9170672 (Version 1)
Quarter: 2013Q1

REPORT INFORMATION
  Report Type: Spontaneous
  Country: GB (occurrence: None)
  Receive Date: 20130312
  Receipt Date: 20130312
  Transmission Date: 20140127
  Serious: No
  Sender: FDA-Public Use
  Company Number: A1014799A

PATIENT
  Sex: 0
  Weight: 4.08 kg

DRUGS (2)
  1. LEVETIRACETAM [Suspect]
     Dosage: TRANSPLACENTARY
  2. LAMOTRIGINE (LAMOTRIGINE) (LAMOTRIGINE) [Suspect]
     Dosage: TRANSPLACENTARY

REACTIONS (2)
  - Maternal drugs affecting foetus [None]
  - Congenital genital malformation [None]
